FAERS Safety Report 10238924 (Version 1)
Quarter: 2014Q2

REPORT INFORMATION
  Report Type: Spontaneous
  Country: US (occurrence: US)
  Receive Date: 20140616
  Receipt Date: 20140616
  Transmission Date: 20141212
  Serious: No
  Sender: FDA-Public Use
  Company Number: US-PFIZER INC-2014159212

PATIENT
  Sex: Female

DRUGS (9)
  1. TYGACIL [Suspect]
     Dosage: UNK
  2. VANCOMYCIN HCL [Suspect]
     Dosage: UNK
  3. DOXYCYCLINE HYCLATE [Suspect]
     Dosage: UNK
  4. TIMENTIN [Suspect]
     Dosage: UNK
  5. LEVAQUIN [Suspect]
     Dosage: UNK
  6. VIBATIV [Suspect]
     Dosage: UNK
  7. CIPROCIN [Suspect]
     Dosage: UNK
  8. FLUOCIN (FLUOCINOLONE ACETONIDE) [Suspect]
  9. PROCIN (CIPROFLOXACIN HYDROCHLORIDE) [Suspect]

REACTIONS (1)
  - Drug hypersensitivity [Unknown]
